FAERS Safety Report 9092986 (Version 1)
Quarter: 2013Q1

REPORT INFORMATION
  Report Type: Spontaneous
  Country: US (occurrence: None)
  Receive Date: 20130213
  Receipt Date: 20130213
  Transmission Date: 20140127
  Serious: Yes (Other)
  Sender: FDA-Public Use
  Company Number: None

PATIENT
  Age: 60 Year
  Sex: Male
  Weight: 105.69 kg

DRUGS (1)
  1. TAMSULOSIN HCL [Suspect]
     Indication: URINE OUTPUT INCREASED
     Route: 048
     Dates: start: 20130208, end: 20130210

REACTIONS (2)
  - Abdominal pain upper [None]
  - Gait disturbance [None]
